FAERS Safety Report 18168719 (Version 2)
Quarter: 2020Q4

REPORT INFORMATION
  Report Type: Report from Study
  Country: US (occurrence: US)
  Receive Date: 20200819
  Receipt Date: 20201106
  Transmission Date: 20210113
  Serious: Yes (Disabling, Other)
  Sender: FDA-Public Use
  Company Number: PHHO2018US009973

PATIENT
  Age: 54 Year
  Sex: Female
  Weight: 36.96 kg

DRUGS (43)
  1. CELEBREX [Concomitant]
     Active Substance: CELECOXIB
     Indication: PAIN
  2. INFLUENZA VACCINE [Concomitant]
     Active Substance: INFLUENZA VIRUS VACCINE
     Dosage: 1, UNK, ONCE
     Route: 030
     Dates: start: 201910, end: 201910
  3. SPIRIVA [Concomitant]
     Active Substance: TIOTROPIUM BROMIDE MONOHYDRATE
     Indication: CHRONIC OBSTRUCTIVE PULMONARY DISEASE
     Dosage: 2.5 MCG, QD
     Route: 055
     Dates: start: 20170717, end: 20180101
  4. LEVOTHYROXINE. [Concomitant]
     Active Substance: LEVOTHYROXINE
     Dosage: 88 MCG, QD
     Route: 048
     Dates: start: 20161205
  5. MULTI VITAMIN [Concomitant]
     Active Substance: VITAMINS
     Indication: SUPPLEMENTATION THERAPY
     Dosage: T TAB, QD
     Route: 048
     Dates: start: 20010411
  6. MACROBID [Concomitant]
     Active Substance: NITROFURANTOIN\NITROFURANTOIN MONOHYDRATE
     Indication: PROPHYLAXIS
     Dosage: 100 MG, QD X5DAYS
     Route: 048
     Dates: start: 20160410, end: 20160414
  7. INFLUENZA VACCINE [Concomitant]
     Active Substance: INFLUENZA VIRUS VACCINE
     Indication: PROPHYLAXIS
     Dosage: TX1 (PRN IN RDC)
     Route: 030
     Dates: start: 20161026, end: 20161026
  8. LEVOTHYROXINE. [Concomitant]
     Active Substance: LEVOTHYROXINE
     Indication: THYROID HORMONE REPLACEMENT THERAPY
     Dosage: 1.0 MG, QD
     Route: 048
     Dates: start: 19960304, end: 20161204
  9. MACROBID [Concomitant]
     Active Substance: NITROFURANTOIN\NITROFURANTOIN MONOHYDRATE
     Indication: URINARY TRACT INFECTION
     Dosage: 100 MG, QD
     Route: 048
     Dates: start: 20200404, end: 20200408
  10. PRILOSEC [Concomitant]
     Active Substance: OMEPRAZOLE MAGNESIUM
     Indication: GASTROOESOPHAGEAL REFLUX DISEASE
     Dosage: 20 MG, BID
     Route: 048
     Dates: start: 20150211, end: 20160510
  11. PROAIR HFA [Concomitant]
     Active Substance: ALBUTEROL SULFATE
     Indication: BRONCHITIS
     Dosage: TT PUFFS, Q4H, PRN
     Route: 048
     Dates: start: 20151112, end: 20160330
  12. KLONOPIN [Concomitant]
     Active Substance: CLONAZEPAM
     Indication: ANXIETY
     Dosage: 0.5 MG, QHS
     Route: 048
     Dates: start: 20020710
  13. CELEXA [Concomitant]
     Active Substance: CITALOPRAM HYDROBROMIDE
     Indication: DEPRESSION
     Dosage: 30 MG, QHS
     Route: 048
     Dates: start: 20020121
  14. BIOTIN [Concomitant]
     Active Substance: BIOTIN
     Indication: SUPPLEMENTATION THERAPY
     Dosage: 10000 MG
     Route: 048
     Dates: start: 20190201
  15. PREDNISONE. [Concomitant]
     Active Substance: PREDNISONE
     Indication: SCIATICA
     Dosage: 60 MG, QD X3 DAYS
     Route: 048
     Dates: start: 20160612, end: 20160614
  16. GRAPE SEED EXTRACT [Concomitant]
     Active Substance: DIETARY SUPPLEMENT\GRAPE SEED EXTRACT
     Indication: SUPPLEMENTATION THERAPY
     Dosage: T TAB, QD
     Route: 048
     Dates: start: 20080302
  17. NEURONTIN [Concomitant]
     Active Substance: GABAPENTIN
     Indication: NEURALGIA
     Dosage: 300 MG, QHS
     Route: 048
     Dates: start: 20020101
  18. CELEBREX [Concomitant]
     Active Substance: CELECOXIB
     Indication: INFLAMMATION
     Dosage: 200 MG, QD
     Route: 048
     Dates: start: 20181214
  19. CELEBREX [Concomitant]
     Active Substance: CELECOXIB
     Indication: MENISCUS INJURY
  20. RECLAST [Concomitant]
     Active Substance: ZOLEDRONIC ACID
     Indication: OSTEOPOROSIS
     Dosage: 5 ML, EVERY YEAR
     Route: 042
     Dates: start: 20190415
  21. MACROBID [Concomitant]
     Active Substance: NITROFURANTOIN\NITROFURANTOIN MONOHYDRATE
     Dosage: 100 MG, QD
     Route: 048
     Dates: start: 20160425, end: 20160501
  22. CEFTIN [Concomitant]
     Active Substance: CEFUROXIME AXETIL
     Indication: URINARY TRACT INFECTION
     Dosage: 500 MG, BID
     Route: 048
     Dates: start: 20161205, end: 20161210
  23. VENTOLIN [Concomitant]
     Active Substance: ALBUTEROL SULFATE
     Indication: CHRONIC OBSTRUCTIVE PULMONARY DISEASE
     Dosage: 180, UNK, PRN
     Route: 055
     Dates: start: 201605
  24. VITAMIN B12 [Concomitant]
     Active Substance: CYANOCOBALAMIN
     Indication: SUPPLEMENTATION THERAPY
     Dosage: 500 MCG, QD
     Route: 048
     Dates: start: 20060505
  25. ZANAFLEX [Concomitant]
     Active Substance: TIZANIDINE HYDROCHLORIDE
     Indication: PRODUCT USED FOR UNKNOWN INDICATION
     Dosage: 4 MG, QHS
     Route: 048
     Dates: start: 20030415
  26. AMOXICILLIN. [Concomitant]
     Active Substance: AMOXICILLIN
     Indication: URINARY TRACT INFECTION
     Dosage: 500 MG, TID X7DAYS
     Route: 048
     Dates: start: 20160330, end: 20160406
  27. INFLUENZA VACCINE [Concomitant]
     Active Substance: INFLUENZA VIRUS VACCINE
     Dosage: 1, UNK, OTHER
     Route: 030
     Dates: start: 201810, end: 201810
  28. OXYBUTYNIN. [Concomitant]
     Active Substance: OXYBUTYNIN CHLORIDE
     Indication: URINARY BLADDER RUPTURE
     Dosage: 5 MG, TID, TT TABS
     Route: 048
     Dates: start: 20140708
  29. MAYZENT [Suspect]
     Active Substance: SIPONIMOD
     Indication: SECONDARY PROGRESSIVE MULTIPLE SCLEROSIS
     Dosage: 52 MG
     Route: 048
     Dates: start: 20140107, end: 20150316
  30. CEFTIN [Concomitant]
     Active Substance: CEFUROXIME AXETIL
     Dosage: 250 MG, BID
     Route: 048
     Dates: start: 20200804, end: 20200810
  31. CRANBERRY. [Concomitant]
     Active Substance: CRANBERRY
     Indication: SUPPLEMENTATION THERAPY
     Dosage: 1000 MG, BID
     Route: 048
     Dates: start: 20140702, end: 201807
  32. NTG [Concomitant]
     Active Substance: NITROGLYCERIN
     Indication: CHEST PAIN
     Dosage: 0.4 MG, PRN
     Route: 048
     Dates: start: 20160512
  33. BAF312 [Suspect]
     Active Substance: SIPONIMOD
     Indication: SECONDARY PROGRESSIVE MULTIPLE SCLEROSIS
     Dosage: 2 MG, QD
     Route: 048
     Dates: start: 20160329
  34. WELLBUTRIN [Concomitant]
     Active Substance: BUPROPION HYDROCHLORIDE
     Indication: DEPRESSION
     Dosage: 150 MG, QD
     Route: 048
     Dates: start: 20170427, end: 20170512
  35. PREDNISONE. [Concomitant]
     Active Substance: PREDNISONE
     Dosage: 40 MG, QD X3DAYS
     Route: 048
     Dates: start: 20160615, end: 20160617
  36. PREDNISONE. [Concomitant]
     Active Substance: PREDNISONE
     Dosage: 20 MG, QD X3DAYS
     Route: 048
     Dates: start: 20160618, end: 20160620
  37. PROLOPRIM [Concomitant]
     Active Substance: TRIMETHOPRIM
     Indication: PROPHYLAXIS
     Dosage: 100 MG, QD
     Route: 048
     Dates: start: 20141018, end: 20160425
  38. MAALOX ANTACID [Concomitant]
     Active Substance: ALUMINUM HYDROXIDE\DIMETHICONE\MAGNESIUM HYDROXIDE
     Indication: GASTRITIS
     Dosage: 2-4 TSP, QHS,PRN
     Route: 048
     Dates: start: 20150126
  39. VITAMIN D3 [Concomitant]
     Active Substance: CHOLECALCIFEROL
     Indication: SUPPLEMENTATION THERAPY
     Dosage: 5000 IU, QD
     Route: 048
     Dates: start: 201005
  40. ENSURE [Concomitant]
     Active Substance: AMINO ACIDS\DEXTROSE\ELECTROLYTES NOS\SOYBEAN OIL\VITAMINS
     Indication: WEIGHT INCREASED
     Dosage: 1202, UNK, QWK
     Route: 048
     Dates: start: 2009
  41. ASA [Concomitant]
     Active Substance: ASPIRIN
     Indication: NEURALGIA
     Dosage: 325 MG
     Route: 048
     Dates: start: 20050508
  42. PROCARDIA [Concomitant]
     Active Substance: NIFEDIPINE
     Indication: RAYNAUD^S PHENOMENON
     Dosage: 30 MG, QHS
     Route: 048
     Dates: start: 20160512
  43. MUCINEX [Concomitant]
     Active Substance: GUAIFENESIN
     Indication: SINUSITIS
     Dosage: T PUFF, Q12H, PRN
     Route: 045
     Dates: start: 20151112, end: 20160331

REACTIONS (2)
  - Alanine aminotransferase increased [Recovering/Resolving]
  - Liver function test increased [Recovered/Resolved]

NARRATIVE: CASE EVENT DATE: 20180831
